FAERS Safety Report 4847165-5 (Version None)
Quarter: 2005Q4

REPORT INFORMATION
  Report Type: 
  Country: None (occurrence: None)
  Receive Date: 20051206
  Receipt Date: 20051206
  Transmission Date: 20060501
  Serious: Yes (Other)
  Sender: FDA-Public Use
  Company Number: None

PATIENT
  Age: 68 Year
  Sex: Male

DRUGS (1)
  1. TERAZOSIN 10MG [Suspect]
     Indication: HYPERTENSION
     Dosage: TAKE ONE CAPSULE DAILY

REACTIONS (1)
  - BLOOD PRESSURE INCREASED [None]
